FAERS Safety Report 17431923 (Version 1)
Quarter: 2020Q1

REPORT INFORMATION
  Report Type: Report from Study
  Country: JP (occurrence: JP)
  Receive Date: 20200218
  Receipt Date: 20200218
  Transmission Date: 20200409
  Serious: Yes (Hospitalization, Other)
  Sender: FDA-Public Use
  Company Number: JP-BAUSCH-BL-2020-004595

PATIENT
  Age: 77 Year
  Sex: Male
  Weight: 54 kg

DRUGS (48)
  1. FLUOROURACIL. [Suspect]
     Active Substance: FLUOROURACIL
     Indication: RECTAL CANCER
     Route: 065
  2. FLUOROURACIL. [Suspect]
     Active Substance: FLUOROURACIL
     Dosage: ONCE
     Route: 040
     Dates: start: 20190424, end: 20190424
  3. FLUOROURACIL. [Suspect]
     Active Substance: FLUOROURACIL
     Dosage: ONCE
     Route: 041
     Dates: start: 20190905, end: 20190905
  4. FLUOROURACIL. [Suspect]
     Active Substance: FLUOROURACIL
     Dosage: ONCE
     Route: 040
     Dates: start: 20191017, end: 20191017
  5. CALCIUM FOLINATE [Suspect]
     Active Substance: LEUCOVORIN CALCIUM
     Dosage: ONCE
     Route: 065
     Dates: start: 20190424, end: 20190424
  6. CALCIUM FOLINATE [Suspect]
     Active Substance: LEUCOVORIN CALCIUM
     Dosage: ONCE
     Route: 065
     Dates: start: 20190704, end: 20190704
  7. CALCIUM FOLINATE [Suspect]
     Active Substance: LEUCOVORIN CALCIUM
     Dosage: ONCE
     Route: 065
     Dates: start: 20190808, end: 20190808
  8. IRINOTECAN [Suspect]
     Active Substance: IRINOTECAN
     Indication: RECTAL CANCER
     Dosage: ONCE
     Route: 065
     Dates: start: 20190123, end: 20190123
  9. IRINOTECAN [Suspect]
     Active Substance: IRINOTECAN
     Dosage: ONCE
     Route: 065
     Dates: start: 20190704, end: 20190704
  10. FLUOROURACIL. [Suspect]
     Active Substance: FLUOROURACIL
     Dosage: ONCE
     Route: 041
     Dates: start: 20190123, end: 20190123
  11. FLUOROURACIL. [Suspect]
     Active Substance: FLUOROURACIL
     Dosage: ONCE
     Route: 040
     Dates: start: 20190227, end: 20190227
  12. FLUOROURACIL. [Suspect]
     Active Substance: FLUOROURACIL
     Route: 041
     Dates: start: 20190227, end: 20190227
  13. FLUOROURACIL. [Suspect]
     Active Substance: FLUOROURACIL
     Dosage: ONCE
     Route: 040
     Dates: start: 20190529, end: 20190529
  14. FLUOROURACIL. [Suspect]
     Active Substance: FLUOROURACIL
     Dosage: ONCE
     Route: 040
     Dates: start: 20190808, end: 20190808
  15. FLUOROURACIL. [Suspect]
     Active Substance: FLUOROURACIL
     Dosage: ONCE
     Route: 041
     Dates: start: 20190808, end: 20190808
  16. FLUOROURACIL. [Suspect]
     Active Substance: FLUOROURACIL
     Dosage: ONCE
     Route: 041
     Dates: start: 20191017, end: 20191017
  17. CALCIUM FOLINATE [Suspect]
     Active Substance: LEUCOVORIN CALCIUM
     Dosage: ONCE
     Route: 065
     Dates: start: 20191017, end: 20191017
  18. FLUOROURACIL. [Suspect]
     Active Substance: FLUOROURACIL
     Dosage: ONCE
     Route: 041
     Dates: start: 20190424, end: 20190424
  19. FLUOROURACIL. [Suspect]
     Active Substance: FLUOROURACIL
     Dosage: ONCE
     Route: 040
     Dates: start: 20190704, end: 20190704
  20. FLUOROURACIL. [Suspect]
     Active Substance: FLUOROURACIL
     Dosage: ONCE
     Route: 040
     Dates: start: 20190905, end: 20190905
  21. IRINOTECAN [Suspect]
     Active Substance: IRINOTECAN
     Dosage: ONCE
     Route: 065
     Dates: start: 20190529, end: 20190529
  22. IRINOTECAN [Suspect]
     Active Substance: IRINOTECAN
     Dosage: ONCE
     Route: 065
     Dates: start: 20190808, end: 20190808
  23. IRINOTECAN [Suspect]
     Active Substance: IRINOTECAN
     Dosage: ONCE
     Route: 065
     Dates: start: 20191017, end: 20191017
  24. FLUOROURACIL. [Suspect]
     Active Substance: FLUOROURACIL
     Indication: RECTAL CANCER
     Dosage: ONCE
     Route: 040
     Dates: start: 20190123, end: 20190123
  25. ZALTRAP [Suspect]
     Active Substance: ZIV-AFLIBERCEPT
     Dosage: ONCE
     Route: 041
     Dates: start: 20190529, end: 20190529
  26. ZALTRAP [Suspect]
     Active Substance: ZIV-AFLIBERCEPT
     Dosage: ONCE
     Route: 041
     Dates: start: 20190704, end: 20190704
  27. ZALTRAP [Suspect]
     Active Substance: ZIV-AFLIBERCEPT
     Dosage: ONCE
     Route: 041
     Dates: start: 20190808, end: 20190808
  28. CALCIUM FOLINATE [Suspect]
     Active Substance: LEUCOVORIN CALCIUM
     Dosage: ONCE
     Route: 065
     Dates: start: 20190529, end: 20190529
  29. CALCIUM FOLINATE [Suspect]
     Active Substance: LEUCOVORIN CALCIUM
     Dosage: ONCE
     Route: 065
     Dates: start: 20190905, end: 20190905
  30. IRINOTECAN [Suspect]
     Active Substance: IRINOTECAN
     Dosage: ONCE
     Route: 065
     Dates: start: 20190424, end: 20190424
  31. IRINOTECAN [Suspect]
     Active Substance: IRINOTECAN
     Route: 065
  32. FLUOROURACIL. [Suspect]
     Active Substance: FLUOROURACIL
     Dosage: ONCE
     Route: 041
     Dates: start: 20190320, end: 20190320
  33. ZALTRAP [Suspect]
     Active Substance: ZIV-AFLIBERCEPT
     Dosage: ONCE
     Route: 041
     Dates: start: 20190227, end: 20190227
  34. ZALTRAP [Suspect]
     Active Substance: ZIV-AFLIBERCEPT
     Dosage: ONCE
     Route: 041
     Dates: start: 20190320, end: 20190320
  35. ZALTRAP [Suspect]
     Active Substance: ZIV-AFLIBERCEPT
     Dosage: ONCE
     Route: 041
     Dates: start: 20190424, end: 20190424
  36. ZALTRAP [Suspect]
     Active Substance: ZIV-AFLIBERCEPT
     Dosage: ONCE
     Route: 041
     Dates: start: 20190905, end: 20190905
  37. FLUOROURACIL. [Suspect]
     Active Substance: FLUOROURACIL
     Dosage: ONCE
     Route: 041
     Dates: start: 20190529, end: 20190529
  38. FLUOROURACIL. [Suspect]
     Active Substance: FLUOROURACIL
     Dosage: ONCE
     Route: 041
     Dates: start: 20190704, end: 20190704
  39. ZALTRAP [Suspect]
     Active Substance: ZIV-AFLIBERCEPT
     Indication: RECTAL CANCER
     Dosage: ONCE
     Route: 041
     Dates: start: 20190123, end: 20190123
  40. CALCIUM FOLINATE [Suspect]
     Active Substance: LEUCOVORIN CALCIUM
     Dosage: ONCE
     Route: 065
     Dates: start: 20190320, end: 20190320
  41. IRINOTECAN [Suspect]
     Active Substance: IRINOTECAN
     Dosage: ONCE
     Route: 065
     Dates: start: 20190320, end: 20190320
  42. FLUOROURACIL. [Suspect]
     Active Substance: FLUOROURACIL
     Dosage: ONCE
     Route: 040
     Dates: start: 20190320, end: 20190320
  43. CALCIUM FOLINATE [Suspect]
     Active Substance: LEUCOVORIN CALCIUM
     Dosage: ONCE
     Route: 065
     Dates: start: 20190227, end: 20190227
  44. IRINOTECAN [Suspect]
     Active Substance: IRINOTECAN
     Dosage: ONCE
     Route: 065
     Dates: start: 20190227, end: 20190227
  45. ZALTRAP [Suspect]
     Active Substance: ZIV-AFLIBERCEPT
     Dosage: ONCE
     Route: 041
     Dates: start: 20191017, end: 20191017
  46. CALCIUM FOLINATE [Suspect]
     Active Substance: LEUCOVORIN CALCIUM
     Indication: RECTAL CANCER
     Dosage: ONCE
     Route: 065
     Dates: start: 20190123, end: 20190123
  47. CALCIUM FOLINATE [Suspect]
     Active Substance: LEUCOVORIN CALCIUM
     Route: 065
  48. IRINOTECAN [Suspect]
     Active Substance: IRINOTECAN
     Dosage: ONCE
     Route: 065
     Dates: start: 20190905, end: 20190905

REACTIONS (1)
  - Febrile neutropenia [Recovering/Resolving]

NARRATIVE: CASE EVENT DATE: 20190714
